FAERS Safety Report 6542769-6 (Version None)
Quarter: 2010Q1

REPORT INFORMATION
  Report Type: 
  Country: None (occurrence: None)
  Receive Date: 20100114
  Receipt Date: 20091228
  Transmission Date: 20100710
  Serious: Yes (Other)
  Sender: FDA-Public Use
  Company Number: JPI-P-009458

PATIENT
  Age: 41 Year
  Sex: Female

DRUGS (2)
  1. XYREM [Suspect]
     Indication: FIBROMYALGIA
     Dosage: 7.5 GM (3.74 GM,2 IN 1 D),ORAL ; 9 GM (4.5 GM,2 IN 1 D),ORAL
     Route: 048
     Dates: start: 20081228, end: 20090101
  2. XYREM [Suspect]
     Indication: FIBROMYALGIA
     Dosage: 7.5 GM (3.74 GM,2 IN 1 D),ORAL ; 9 GM (4.5 GM,2 IN 1 D),ORAL
     Route: 048
     Dates: start: 20090101

REACTIONS (2)
  - BREAST HYPERPLASIA [None]
  - TONSILLECTOMY [None]
